FAERS Safety Report 6566395-8 (Version None)
Quarter: 2010Q1

REPORT INFORMATION
  Report Type: 
  Country: None (occurrence: None)
  Receive Date: 20100127
  Receipt Date: 20100115
  Transmission Date: 20100710
  Serious: Yes (Other)
  Sender: FDA-Public Use
  Company Number: SPV1-2009-02486

PATIENT
  Age: 53 Year
  Sex: Female

DRUGS (2)
  1. FOSRENOL [Suspect]
     Indication: BLOOD PHOSPHORUS INCREASED
     Dosage: 750 MG, ORAL
     Route: 048
     Dates: start: 20071115, end: 20080531
  2. PROTON PUMP INHIBITORS [Concomitant]

REACTIONS (1)
  - GASTRIC POLYPS [None]
